FAERS Safety Report 5812173-4 (Version None)
Quarter: 2008Q3

REPORT INFORMATION
  Report Type: 
  Country: None (occurrence: None)
  Receive Date: 20080716
  Receipt Date: 20080710
  Transmission Date: 20090109
  Serious: Yes (Life-Threatening)
  Sender: FDA-Public Use
  Company Number: JP-GENENTECH-262609

PATIENT
  Sex: Male
  Weight: 64 kg

DRUGS (5)
  1. RITUXAN [Suspect]
     Indication: NON-HODGKIN'S LYMPHOMA
     Dosage: 375 MG/M2, QD
     Route: 041
     Dates: start: 20080507, end: 20080507
  2. PREDNISOLONE [Concomitant]
     Indication: PREMEDICATION
     Dosage: 40 MG, QD
     Dates: start: 20080502, end: 20080506
  3. CARVEDILOL [Concomitant]
     Indication: ATRIAL FIBRILLATION
     Dosage: UNK
     Dates: end: 20080705
  4. WARFARIN POTASSIUM [Concomitant]
     Indication: DRUG USE FOR UNKNOWN INDICATION
     Dosage: UNK
     Dates: end: 20080507
  5. VERAPAMIL [Concomitant]
     Indication: HYPERTENSION

REACTIONS (1)
  - HAEMORRHAGIC CEREBRAL INFARCTION [None]
